FAERS Safety Report 13720364 (Version 4)
Quarter: 2017Q3

REPORT INFORMATION
  Report Type: Spontaneous
  Country: CA (occurrence: CA)
  Receive Date: 20170706
  Receipt Date: 20170906
  Transmission Date: 20171127
  Serious: Yes (Other)
  Sender: FDA-Public Use
  Company Number: CA-ROCHE-1959341

PATIENT

DRUGS (3)
  1. ACTEMRA [Suspect]
     Active Substance: TOCILIZUMAB
     Indication: PRODUCT USED FOR UNKNOWN INDICATION
     Route: 042
     Dates: start: 20170704
  2. ACTEMRA [Suspect]
     Active Substance: TOCILIZUMAB
     Dosage: NEXT INFUSION SCHEDULED 01/SEP/2017
     Route: 042
     Dates: start: 20170801
  3. ACTEMRA [Suspect]
     Active Substance: TOCILIZUMAB
     Dosage: NEXT INFUSION SCHEDULED: 2017-SEP-29
     Route: 042
     Dates: start: 20170831

REACTIONS (2)
  - Arthralgia [Recovering/Resolving]
  - Investigation abnormal [Unknown]
